FAERS Safety Report 4396230-8 (Version None)
Quarter: 2004Q3

REPORT INFORMATION
  Report Type: 
  Country: None (occurrence: None)
  Receive Date: 20040706
  Receipt Date: 20040616
  Transmission Date: 20050211
  Serious: Yes (Other)
  Sender: FDA-Public Use
  Company Number: B0336133A

PATIENT
  Sex: Male

DRUGS (1)
  1. THIOGUANINE [Suspect]
     Indication: ACUTE LYMPHOCYTIC LEUKAEMIA
     Dosage: ORAL
     Route: 048

REACTIONS (4)
  - FOCAL NODULAR HYPERPLASIA [None]
  - HEPATIC FIBROSIS [None]
  - SPLENOMEGALY [None]
  - THROMBOCYTOPENIA [None]
